FAERS Safety Report 4617667-5 (Version None)
Quarter: 2005Q1

REPORT INFORMATION
  Report Type: 
  Country: None (occurrence: None)
  Receive Date: 20050322
  Receipt Date: 20050307
  Transmission Date: 20050727
  Serious: Yes (Hospitalization)
  Sender: FDA-Public Use
  Company Number: 2005CG00490

PATIENT
  Age: 83 Year
  Sex: Male

DRUGS (3)
  1. MOPRAL [Suspect]
     Dosage: 10 MG DAILY PO
     Route: 048
  2. LAROXYL [Suspect]
     Indication: NEOPLASM MALIGNANT
     Dosage: 1 GIT DAILY PO
     Route: 048
  3. LAROXYL [Suspect]
     Indication: NEUROPATHIC PAIN
     Dosage: 1 GIT DAILY PO
     Route: 048

REACTIONS (5)
  - COGWHEEL RIGIDITY [None]
  - CONFUSIONAL STATE [None]
  - EXTRAPYRAMIDAL DISORDER [None]
  - HYPERTONIA [None]
  - TREMOR [None]
